FAERS Safety Report 6175988-1 (Version None)
Quarter: 2009Q2

REPORT INFORMATION
  Report Type: 
  Country: None (occurrence: None)
  Receive Date: 20090501
  Receipt Date: 20090423
  Transmission Date: 20091009
  Serious: Yes (Other)
  Sender: FDA-Public Use
  Company Number: CA-ASTRAZENECA-2009UW10166

PATIENT
  Sex: Male

DRUGS (4)
  1. CRESTOR [Suspect]
     Route: 048
  2. TRAZEC XC [Concomitant]
     Indication: HYPERTENSION
  3. CENTRUM [Concomitant]
  4. CARBOCAL D [Concomitant]

REACTIONS (5)
  - ABDOMINAL PAIN UPPER [None]
  - ARTHRALGIA [None]
  - CHOLELITHIASIS [None]
  - MEDIAL TIBIAL STRESS SYNDROME [None]
  - NAUSEA [None]
